FAERS Safety Report 10331386 (Version 2)
Quarter: 2016Q2

REPORT INFORMATION
  Report Type: Spontaneous
  Country: US (occurrence: US)
  Receive Date: 20140722
  Receipt Date: 20160426
  Transmission Date: 20160815
  Serious: Yes (Hospitalization)
  Sender: FDA-Public Use
  Company Number: US-BAYER-2014-107154

PATIENT
  Age: 30 Year
  Sex: Female
  Weight: 79.37 kg

DRUGS (8)
  1. MIRENA [Suspect]
     Active Substance: LEVONORGESTREL
     Indication: CONTRACEPTION
     Dosage: 20 MCG/24HR, CONT
     Route: 015
     Dates: start: 20071128, end: 20121206
  2. DEPAKOTE [Concomitant]
     Active Substance: DIVALPROEX SODIUM
  3. ATROVENT [Concomitant]
     Active Substance: IPRATROPIUM BROMIDE
  4. VENTOLIN [Concomitant]
     Active Substance: ALBUTEROL SULFATE
  5. ALBUTEROL. [Concomitant]
     Active Substance: ALBUTEROL
  6. QVAR [Concomitant]
     Active Substance: BECLOMETHASONE DIPROPIONATE
  7. SINGULAIR [Concomitant]
     Active Substance: MONTELUKAST SODIUM
  8. CLEOCIN [Concomitant]
     Active Substance: CLINDAMYCIN PHOSPHATE

REACTIONS (8)
  - Embedded device [Not Recovered/Not Resolved]
  - Injury [Not Recovered/Not Resolved]
  - Medical device pain [Not Recovered/Not Resolved]
  - Device use error [None]
  - Post procedural discomfort [None]
  - Menorrhagia [None]
  - Procedural pain [Not Recovered/Not Resolved]
  - Device issue [None]

NARRATIVE: CASE EVENT DATE: 2010
